FAERS Safety Report 6766055-4 (Version None)
Quarter: 2010Q2

REPORT INFORMATION
  Report Type: 
  Country: None (occurrence: None)
  Receive Date: 20100611
  Receipt Date: 20100609
  Transmission Date: 20101027
  Serious: Yes (Other)
  Sender: FDA-Public Use
  Company Number: B0639548A

PATIENT
  Sex: Male

DRUGS (13)
  1. REQUIP [Suspect]
     Indication: PARKINSON'S DISEASE
  2. QUETIAPINE [Concomitant]
  3. ORPHENADRINE CITRATE [Concomitant]
  4. TEMAZEPAM [Concomitant]
  5. ASPIRIN [Concomitant]
  6. ATENOLOL [Concomitant]
  7. CO-CARELDOPA [Concomitant]
  8. BENDROFLUMETHIAZIDE [Concomitant]
  9. SIMVASTATIN [Concomitant]
  10. RAMIPRIL [Concomitant]
  11. ISOTARD [Concomitant]
  12. LEVODOPA [Concomitant]
  13. STALEVO 100 [Concomitant]

REACTIONS (6)
  - DEPENDENCE [None]
  - HALLUCINATION, VISUAL [None]
  - HYPERSEXUALITY [None]
  - PATHOLOGICAL GAMBLING [None]
  - SOCIAL PROBLEM [None]
  - SOMNOLENCE [None]
